FAERS Safety Report 10344056 (Version 1)
Quarter: 2014Q3

REPORT INFORMATION
  Report Type: Spontaneous
  Country: US (occurrence: None)
  Receive Date: 20140725
  Receipt Date: 20140725
  Transmission Date: 20150326
  Serious: Yes (Hospitalization)
  Sender: FDA-Public Use
  Company Number: None

PATIENT
  Age: 89 Year
  Sex: Female
  Weight: 58.97 kg

DRUGS (10)
  1. FEROSIMIDE [Concomitant]
  2. METOPROLOL [Concomitant]
     Active Substance: METOPROLOL
  3. ALOPURONOL [Concomitant]
  4. PRAVASTATIN [Concomitant]
     Active Substance: PRAVASTATIN\PRAVASTATIN SODIUM
  5. FEROSULFER [Concomitant]
  6. FISH OIL [Concomitant]
     Active Substance: FISH OIL
  7. RANEXA [Suspect]
     Active Substance: RANOLAZINE
     Indication: ANGINA PECTORIS
     Dosage: 2  1 MORNING  1 NIGHT  BY MOUTH
     Route: 048
     Dates: start: 20140616, end: 20140618
  8. ASPERIN [Concomitant]
  9. VIT. C [Concomitant]
  10. BENECAR [Concomitant]

REACTIONS (1)
  - Tremor [None]

NARRATIVE: CASE EVENT DATE: 20140616
